FAERS Safety Report 16965240 (Version 1)
Quarter: 2019Q4

REPORT INFORMATION
  Report Type: Spontaneous
  Country: GR (occurrence: GR)
  Receive Date: 20191028
  Receipt Date: 20191028
  Transmission Date: 20200122
  Serious: Yes (Other)
  Sender: FDA-Public Use
  Company Number: GR-MYLANLABS-2018M1033596

PATIENT
  Age: 51 Year
  Sex: Male

DRUGS (8)
  1. SUNITINIB [Suspect]
     Active Substance: SUNITINIB
     Indication: METASTATIC RENAL CELL CARCINOMA
     Dosage: UNK
     Route: 048
  2. ZOLEDRONIC ACID [Suspect]
     Active Substance: ZOLEDRONIC ACID
     Indication: PRODUCT USED FOR UNKNOWN INDICATION
     Dosage: 2 DF, TOTAL
     Route: 065
     Dates: start: 201307
  3. BEVACIZUMAB. [Suspect]
     Active Substance: BEVACIZUMAB
     Dosage: UNK
     Route: 065
     Dates: start: 201305, end: 201310
  4. TEMSIROLIMUS. [Concomitant]
     Active Substance: TEMSIROLIMUS
     Dosage: UNK
     Route: 065
     Dates: start: 201305, end: 201310
  5. ZOLEDRONIC ACID [Suspect]
     Active Substance: ZOLEDRONIC ACID
     Dosage: RECEIVED 2 INJECTIONS
     Route: 065
     Dates: start: 201307
  6. BEVACIZUMAB. [Suspect]
     Active Substance: BEVACIZUMAB
     Indication: METASTATIC RENAL CELL CARCINOMA
     Dosage: UNK
     Route: 065
  7. TEMSIROLIMUS. [Concomitant]
     Active Substance: TEMSIROLIMUS
     Indication: METASTATIC RENAL CELL CARCINOMA
     Dosage: UNK
  8. SUNITINIB [Suspect]
     Active Substance: SUNITINIB
     Dosage: UNK
     Route: 048
     Dates: start: 201210, end: 201304

REACTIONS (3)
  - Fracture [Unknown]
  - Periodontal disease [Not Recovered/Not Resolved]
  - Osteonecrosis of jaw [Unknown]

NARRATIVE: CASE EVENT DATE: 201308
